FAERS Safety Report 6845062-7 (Version None)
Quarter: 2010Q3

REPORT INFORMATION
  Report Type: 
  Country: None (occurrence: None)
  Receive Date: 20100715
  Receipt Date: 20100702
  Transmission Date: 20110219
  Serious: Yes (Hospitalization)
  Sender: FDA-Public Use
  Company Number: JP-PFIZER INC-2010072591

PATIENT
  Age: 24 Year
  Sex: Female
  Weight: 49.8 kg

DRUGS (2)
  1. METHYLPREDNISOLONE SODIUM SUCCINATE [Suspect]
     Indication: LUPUS NEPHRITIS
     Dosage: 1 G, 1X/DAY
     Route: 042
     Dates: start: 20000101, end: 20000101
  2. PREDNISOLONE [Suspect]
     Indication: LUPUS NEPHRITIS
     Dosage: 50 MG, 1X/DAY
     Route: 048
     Dates: start: 20000101, end: 20000101

REACTIONS (2)
  - ATRIAL THROMBOSIS [None]
  - VENA CAVA THROMBOSIS [None]
